FAERS Safety Report 8942149 (Version 1)
Quarter: 2012Q4

REPORT INFORMATION
  Report Type: 
  Country: US (occurrence: US)
  Receive Date: 20121203
  Receipt Date: 20121203
  Transmission Date: 20130627
  Serious: Yes (Hospitalization)
  Sender: FDA-Public Use
  Company Number: US-INCYTE CORPORATION-2012IN002453

PATIENT
  Age: 71 None
  Sex: Male

DRUGS (4)
  1. JAKAFI [Suspect]
     Indication: MYELOFIBROSIS
     Dosage: 5 mg, bid
     Route: 048
     Dates: start: 2012, end: 20121010
  2. HIGH BLOOD PRESSURE MEDICATION [Concomitant]
  3. HEART MEDICATION [Concomitant]
  4. STOMACH MEDICATION [Concomitant]

REACTIONS (2)
  - Gastric ulcer haemorrhage [Unknown]
  - Laboratory test abnormal [Unknown]
